FAERS Safety Report 6283099-X (Version None)
Quarter: 2009Q3

REPORT INFORMATION
  Report Type: 
  Country: None (occurrence: None)
  Receive Date: 20090724
  Receipt Date: 20090720
  Transmission Date: 20100115
  Serious: Yes (Death)
  Sender: FDA-Public Use
  Company Number: A0797211A

PATIENT
  Sex: Male
  Weight: 57 kg

DRUGS (4)
  1. ELTROMBOPAG [Suspect]
     Indication: THROMBOCYTOPENIA
     Dosage: 25MG PER DAY
     Route: 048
     Dates: start: 20090608, end: 20090705
  2. ELTROMBOPAG [Suspect]
     Dosage: 50MG PER DAY
     Route: 048
     Dates: start: 20090706, end: 20090715
  3. PEGASYS [Suspect]
     Dosage: 180MCG WEEKLY
     Route: 058
     Dates: start: 20090706, end: 20090715
  4. COPEGUS [Suspect]
     Dosage: 800MG PER DAY
     Route: 048
     Dates: start: 20090706, end: 20090715

REACTIONS (1)
  - DEATH [None]
